FAERS Safety Report 14304780 (Version 1)
Quarter: 2017Q4

REPORT INFORMATION
  Report Type: Report from Study
  Country: JP (occurrence: JP)
  Receive Date: 20171219
  Receipt Date: 20171219
  Transmission Date: 20180321
  Serious: Yes (Hospitalization, Other)
  Sender: FDA-Public Use
  Company Number: JP-OTSUKA-JP-2011-10022

PATIENT
  Age: 49 Year
  Sex: Male
  Weight: 55.7 kg

DRUGS (15)
  1. HIRNAMIN [Concomitant]
     Active Substance: PHENOTHIAZINE
     Dosage: 25 MG, QD
     Route: 048
     Dates: start: 20100407, end: 20100411
  2. TEGRETOL [Concomitant]
     Active Substance: CARBAMAZEPINE
     Indication: PRODUCT USED FOR UNKNOWN INDICATION
     Dosage: 600 MG, QD
     Route: 048
     Dates: start: 20091110, end: 20091116
  3. TEGRETOL [Concomitant]
     Active Substance: CARBAMAZEPINE
     Dosage: 200 MG, QD
     Route: 048
     Dates: start: 20100814, end: 20100827
  4. DORAL [Concomitant]
     Active Substance: QUAZEPAM
     Indication: PRODUCT USED FOR UNKNOWN INDICATION
     Dosage: 15 MG, QD
     Route: 048
     Dates: start: 20091225, end: 20100704
  5. ARIPIPRAZOLE. [Suspect]
     Active Substance: ARIPIPRAZOLE
     Indication: SCHIZOPHRENIA
     Dosage: 24 MG, QD
     Route: 048
     Dates: start: 20091212, end: 20091215
  6. LENDORMIN D [Concomitant]
     Active Substance: BROTIZOLAM
     Indication: PRODUCT USED FOR UNKNOWN INDICATION
     Dosage: 0.5 MG, QD
     Route: 048
     Dates: start: 20091110
  7. CONTOMIN [Concomitant]
     Active Substance: CHLORPROMAZINE
     Indication: SCHIZOPHRENIA
     Dosage: 25 MG, QD
     Route: 048
     Dates: start: 20091207, end: 20091208
  8. HIRNAMIN [Concomitant]
     Active Substance: PHENOTHIAZINE
     Indication: SCHIZOPHRENIA
     Dosage: 50 MG, QD
     Route: 048
     Dates: start: 20100331, end: 20100406
  9. HIRNAMIN [Concomitant]
     Active Substance: PHENOTHIAZINE
     Dosage: 50 MG, QD
     Route: 048
     Dates: start: 20100712
  10. TEGRETOL [Concomitant]
     Active Substance: CARBAMAZEPINE
     Dosage: 400 MG, QD
     Route: 048
     Dates: start: 20100807, end: 20100813
  11. ROHYPNOL [Concomitant]
     Active Substance: FLUNITRAZEPAM
     Indication: PRODUCT USED FOR UNKNOWN INDICATION
     Dosage: 4 MG, QD
     Route: 048
     Dates: start: 20091110
  12. ARIPIPRAZOLE. [Suspect]
     Active Substance: ARIPIPRAZOLE
     Dosage: 30 MG, QD
     Route: 048
     Dates: start: 20091216, end: 20101209
  13. HIRNAMIN [Concomitant]
     Active Substance: PHENOTHIAZINE
     Dosage: 75 MG, QD
     Route: 048
     Dates: start: 20100412, end: 20100711
  14. TEGRETOL [Concomitant]
     Active Substance: CARBAMAZEPINE
     Dosage: 800 MG, QD
     Route: 048
     Dates: start: 20091117, end: 20100806
  15. CONTOMIN [Concomitant]
     Active Substance: CHLORPROMAZINE
     Dosage: 50 MG, QD
     Route: 048
     Dates: start: 20091209, end: 20100711

REACTIONS (3)
  - Pleurisy [Recovered/Resolved]
  - Pneumonia [Recovering/Resolving]
  - Constipation [Recovering/Resolving]

NARRATIVE: CASE EVENT DATE: 20100407
